FAERS Safety Report 10166490 (Version 2)
Quarter: 2014Q2

REPORT INFORMATION
  Report Type: Spontaneous
  Country: US (occurrence: US)
  Receive Date: 20140512
  Receipt Date: 20140512
  Transmission Date: 20141212
  Serious: No
  Sender: FDA-Public Use
  Company Number: US-MYLANLABS-2014S1004304

PATIENT
  Age: 59 Year
  Sex: Female
  Weight: 65.77 kg

DRUGS (14)
  1. MORPHINE SULFATE EXTENDED-RELEASE TABLETS [Suspect]
     Indication: PAIN
     Route: 048
     Dates: start: 201312, end: 201312
  2. MORPHINE SULFATE EXTENDED-RELEASE TABLETS [Suspect]
     Indication: PAIN
     Route: 048
     Dates: start: 201402
  3. LEVOTHYROXINE [Concomitant]
  4. PREDNISONE [Concomitant]
  5. PANTOPRAZOLE [Concomitant]
  6. EVISTA [Concomitant]
  7. COLCRYS [Concomitant]
  8. CELEBREX [Concomitant]
  9. POLYETHYLENE GLYCOL [Concomitant]
  10. DULCOLAX /00064401/ [Concomitant]
  11. MULTIVITAMIN [Concomitant]
  12. CALCIUM MAGNESIUM /01412301/ [Concomitant]
  13. VITAMIN D [Concomitant]
  14. MELATONIN [Concomitant]

REACTIONS (1)
  - Sedation [Not Recovered/Not Resolved]
